APPROVED DRUG PRODUCT: MYFED
Active Ingredient: PSEUDOEPHEDRINE HYDROCHLORIDE; TRIPROLIDINE HYDROCHLORIDE
Strength: 30MG/5ML;1.25MG/5ML
Dosage Form/Route: SYRUP;ORAL
Application: A088116 | Product #001
Applicant: USL PHARMA INC
Approved: Mar 4, 1983 | RLD: No | RS: No | Type: DISCN